FAERS Safety Report 10242691 (Version 2)
Quarter: 2014Q2

REPORT INFORMATION
  Report Type: Spontaneous
  Country: JP (occurrence: JP)
  Receive Date: 20140617
  Receipt Date: 20140630
  Transmission Date: 20141212
  Serious: Yes (Other)
  Sender: FDA-Public Use
  Company Number: JP-PFIZER INC-2014161626

PATIENT
  Age: 3 Decade
  Sex: Female

DRUGS (1)
  1. ZITHROMAC SR [Suspect]
     Indication: NASOPHARYNGITIS
     Dosage: 2 G, SINGLE
     Route: 048
     Dates: start: 20130430, end: 20130430

REACTIONS (1)
  - Enterocolitis [Recovered/Resolved]
